FAERS Safety Report 4772186-0 (Version None)
Quarter: 2005Q3

REPORT INFORMATION
  Report Type: 
  Country: None (occurrence: None)
  Receive Date: 20050919
  Receipt Date: 20041026
  Transmission Date: 20060218
  Serious: No
  Sender: FDA-Public Use
  Company Number: US-BRISTOL-MYERS SQUIBB COMPANY-12748224

PATIENT
  Sex: Male

DRUGS (1)
  1. DEFINITY [Suspect]
     Indication: STRESS ECHOCARDIOGRAM
     Dosage: RECEIVED 1 CC.  PERFLUTREN MIXTURE(^1.5/8CC SALINE-SYRINGE^);MECHANICIAL INDEX SETTING WAS.3
     Dates: start: 20041019, end: 20041019

REACTIONS (1)
  - BACK PAIN [None]
